FAERS Safety Report 7518100-6 (Version None)
Quarter: 2011Q2

REPORT INFORMATION
  Report Type: 
  Country: None (occurrence: None)
  Receive Date: 20110602
  Receipt Date: 20110526
  Transmission Date: 20111010
  Serious: Yes (Life-Threatening, Hospitalization, Other)
  Sender: FDA-Public Use
  Company Number: US-SP-2011-03141

PATIENT
  Sex: Female

DRUGS (1)
  1. TUBERSOL [Suspect]
     Indication: TUBERCULIN TEST
     Route: 065
     Dates: start: 20110523, end: 20110523

REACTIONS (14)
  - SYNCOPE [None]
  - DEHYDRATION [None]
  - RESPIRATION ABNORMAL [None]
  - PALLOR [None]
  - DIZZINESS [None]
  - NASOPHARYNGITIS [None]
  - ANAPHYLACTIC REACTION [None]
  - PULSE PRESSURE DECREASED [None]
  - HYPERHIDROSIS [None]
  - LETHARGY [None]
  - HYPOTENSION [None]
  - GAIT DISTURBANCE [None]
  - CYANOSIS [None]
  - BRADYCARDIA [None]
